FAERS Safety Report 7313207-0 (Version None)
Quarter: 2011Q1

REPORT INFORMATION
  Report Type: 
  Country: None (occurrence: None)
  Receive Date: 20110225
  Receipt Date: 20110214
  Transmission Date: 20110831
  Serious: Yes (Hospitalization, Other)
  Sender: FDA-Public Use
  Company Number: US-ELI_LILLY_AND_COMPANY-US201101006096

PATIENT
  Sex: Female
  Weight: 73.923 kg

DRUGS (16)
  1. FORTEO [Suspect]
     Indication: OSTEOPOROSIS
     Dosage: 20 UG, DAILY (1/D)
     Route: 058
     Dates: start: 20100115
  2. LEVAQUIN [Concomitant]
  3. GLIPIZIDE [Concomitant]
  4. ALPHAGAN [Concomitant]
  5. COZAAR [Concomitant]
  6. LUMIGAN [Concomitant]
  7. PRAVASTATIN [Concomitant]
  8. GABAPENTINA [Concomitant]
  9. DOXYCYCLINE [Concomitant]
  10. ADVAIR DISKUS 100/50 [Concomitant]
  11. ACTOS [Concomitant]
  12. ENALAPRIL MALEATE [Concomitant]
  13. SERTRALINE HYDROCHLORIDE [Concomitant]
  14. METFORMIN [Concomitant]
  15. BIAXIN [Concomitant]
  16. VENTOLIN                                /SCH/ [Concomitant]

REACTIONS (2)
  - GOUT [None]
  - PANCREATITIS [None]
